FAERS Safety Report 22300234 (Version 2)
Quarter: 2023Q2

REPORT INFORMATION
  Report Type: Spontaneous
  Country: US (occurrence: US)
  Receive Date: 20230509
  Receipt Date: 20230613
  Transmission Date: 20230721
  Serious: Yes (Other)
  Sender: FDA-Public Use
  Company Number: US-KOWA PHARMACEUTICALS-2023KOW00019

PATIENT
  Age: 63 Year
  Sex: Female
  Weight: 77.098 kg

DRUGS (3)
  1. SEGLENTIS [Suspect]
     Active Substance: CELECOXIB\TRAMADOL HYDROCHLORIDE
     Indication: Pain
     Dosage: 2 TABLETS, 2X/DAY (EVERY 12 HOURS)
     Route: 048
     Dates: start: 20230418, end: 20230422
  2. MACROBID [Concomitant]
     Active Substance: NITROFURANTOIN\NITROFURANTOIN MONOHYDRATE
     Dosage: 100 MG, 2X/DAY
  3. AMOXICILLIN [Concomitant]
     Active Substance: AMOXICILLIN
     Dosage: 500/125, 2X/DAY (EVERY 12 HRS)

REACTIONS (1)
  - Conjunctival haemorrhage [Recovered/Resolved]

NARRATIVE: CASE EVENT DATE: 20230422
